FAERS Safety Report 25275917 (Version 1)
Quarter: 2025Q2

REPORT INFORMATION
  Report Type: Spontaneous
  Country: US (occurrence: US)
  Receive Date: 20250507
  Receipt Date: 20250507
  Transmission Date: 20250716
  Serious: Yes (Other)
  Sender: NOVARTIS
  Company Number: US-002147023-NVSC2025US072842

PATIENT
  Sex: Male

DRUGS (1)
  1. PROMACTA [Suspect]
     Active Substance: ELTROMBOPAG OLAMINE
     Indication: Thrombocytopenia
     Dosage: 75 MG, QD
     Route: 048
     Dates: start: 201808

REACTIONS (3)
  - Haemorrhoids [Unknown]
  - Rectal haemorrhage [Unknown]
  - Epistaxis [Unknown]
